FAERS Safety Report 4374893-0 (Version None)
Quarter: 2004Q2

REPORT INFORMATION
  Report Type: 
  Country: None (occurrence: None)
  Receive Date: 20040603
  Receipt Date: 20040105
  Transmission Date: 20050107
  Serious: Yes (Death, Life-Threatening)
  Sender: FDA-Public Use
  Company Number: 200410115US

PATIENT
  Age: 46 Year
  Sex: Male

DRUGS (2)
  1. LOVENOX [Suspect]
     Indication: ANGINA UNSTABLE
     Dosage: 80 MG Q12H
  2. OTHER HEART MEDICATION NOS [Concomitant]

REACTIONS (2)
  - MYOCARDIAL INFARCTION [None]
  - PULMONARY HAEMORRHAGE [None]
